FAERS Safety Report 9532288 (Version 1)
Quarter: 2013Q3

REPORT INFORMATION
  Report Type: Spontaneous
  Country: US (occurrence: None)
  Receive Date: 20130916
  Receipt Date: 20130916
  Transmission Date: 20140515
  Serious: Yes (Death, Hospitalization)
  Sender: FDA-Public Use
  Company Number: 2013AP007995

PATIENT
  Age: 23 Month
  Sex: Male
  Weight: 12.5 kg

DRUGS (2)
  1. CARBAMAZEPINE [Suspect]
     Indication: CONVULSION
  2. PHENYTOIN [Suspect]
     Indication: CONVULSION

REACTIONS (5)
  - Toxicity to various agents [None]
  - Unresponsive to stimuli [None]
  - Cyanosis [None]
  - Cardiac arrest [None]
  - Drug interaction [None]
